FAERS Safety Report 16582125 (Version 2)
Quarter: 2019Q3

REPORT INFORMATION
  Report Type: Report from Study
  Country: MX (occurrence: MX)
  Receive Date: 20190717
  Receipt Date: 20190820
  Transmission Date: 20191004
  Serious: Yes (Other)
  Sender: FDA-Public Use
  Company Number: PHHY2019MX164378

PATIENT
  Age: 59 Year
  Sex: Male
  Weight: 82 kg

DRUGS (5)
  1. TRAVATAN [Suspect]
     Active Substance: TRAVOPROST
     Indication: GLAUCOMA
     Dosage: 1 GTT, Q24H, IN EACH EYE
     Route: 047
     Dates: start: 2012
  2. ALPRAZOLAM. [Concomitant]
     Active Substance: ALPRAZOLAM
     Indication: DEPRESSION
     Dosage: 1/4 TABLET, QD
     Route: 048
     Dates: start: 2011
  3. LUVOX [Concomitant]
     Active Substance: FLUVOXAMINE MALEATE
     Indication: DEPRESSION
     Dosage: 1 DF, Q24H
     Route: 048
     Dates: start: 2011
  4. SOLIAN [Concomitant]
     Active Substance: AMISULPRIDE
     Indication: DEPRESSION
     Dosage: UNK UNK, QD, 1/4 TABLET
     Route: 048
     Dates: start: 2011
  5. AKATINOL [Concomitant]
     Indication: CEREBRAL DISORDER
     Dosage: 1 DF, Q24H
     Route: 048

REACTIONS (3)
  - Blindness [Recovered/Resolved with Sequelae]
  - Cataract [Unknown]
  - Visual impairment [Unknown]

NARRATIVE: CASE EVENT DATE: 201906
